FAERS Safety Report 9413063 (Version 2)
Quarter: 2013Q3

REPORT INFORMATION
  Report Type: Spontaneous
  Country: JP (occurrence: JP)
  Receive Date: 20130722
  Receipt Date: 20130724
  Transmission Date: 20140515
  Serious: Yes (Hospitalization, Disabling)
  Sender: FDA-Public Use
  Company Number: JP-GLAXOSMITHKLINE-B0909333A

PATIENT
  Age: 63 Year
  Sex: Female

DRUGS (9)
  1. PAXIL [Suspect]
     Indication: DEPRESSION
     Dosage: 20MG PER DAY
     Route: 048
     Dates: start: 200611, end: 201111
  2. DEPAS [Concomitant]
     Route: 048
  3. CONSTAN [Concomitant]
     Route: 048
  4. EBRANTIL [Concomitant]
     Route: 048
  5. UBRETID [Concomitant]
     Route: 065
  6. TECIPUL [Concomitant]
     Route: 048
  7. SOLANAX [Concomitant]
     Route: 048
  8. SULPIRIDE [Concomitant]
     Route: 065
  9. TAGAMET [Concomitant]
     Route: 065

REACTIONS (4)
  - Pyelonephritis [Recovered/Resolved]
  - Urinary retention [Not Recovered/Not Resolved]
  - Urinary incontinence [Recovered/Resolved]
  - Pollakiuria [Not Recovered/Not Resolved]
